FAERS Safety Report 23547972 (Version 3)
Quarter: 2024Q2

REPORT INFORMATION
  Report Type: Spontaneous
  Country: US (occurrence: US)
  Receive Date: 20240221
  Receipt Date: 20240405
  Transmission Date: 20240717
  Serious: No
  Sender: FDA-Public Use
  Company Number: US-BRISTOL-MYERS SQUIBB COMPANY-2024-027968

PATIENT
  Age: 60 Year
  Sex: Female

DRUGS (2)
  1. SPRYCEL [Suspect]
     Active Substance: DASATINIB
     Indication: Chronic myeloid leukaemia
     Route: 048
     Dates: start: 20240207, end: 20240217
  2. SPRYCEL [Suspect]
     Active Substance: DASATINIB
     Route: 048
     Dates: start: 202401

REACTIONS (9)
  - Oropharyngeal pain [Unknown]
  - Swollen tongue [Unknown]
  - Ageusia [Unknown]
  - Throat tightness [Unknown]
  - Mouth swelling [Unknown]
  - Headache [Unknown]
  - Lethargy [Unknown]
  - Blood iron decreased [Unknown]
  - Thyroid function test abnormal [Unknown]
